FAERS Safety Report 22235180 (Version 1)
Quarter: 2023Q2

REPORT INFORMATION
  Report Type: Report from Study
  Country: CN (occurrence: CN)
  Receive Date: 20230420
  Receipt Date: 20230420
  Transmission Date: 20230722
  Serious: Yes (Other)
  Sender: FDA-Public Use
  Company Number: CN-SUN PHARMACEUTICAL INDUSTRIES LTD-2023R1-385890

PATIENT
  Sex: Female
  Weight: 1.03 kg

DRUGS (4)
  1. PREDNISONE [Suspect]
     Active Substance: PREDNISONE
     Indication: Antiphospholipid syndrome
     Dosage: 5 MILLIGRAM, DAILY
     Route: 064
  2. HYDROXYCHLOROQUINE [Suspect]
     Active Substance: HYDROXYCHLOROQUINE
     Indication: Sjogren^s syndrome
     Dosage: 400 MILLIGRAM, DAILY
     Route: 064
  3. ASPIRIN [Suspect]
     Active Substance: ASPIRIN
     Indication: Sjogren^s syndrome
     Dosage: 100 MILLIGRAM, DAILY
     Route: 064
  4. HEPARIN [Suspect]
     Active Substance: HEPARIN SODIUM
     Indication: Sjogren^s syndrome
     Dosage: 6000 IU, Q12H
     Route: 064

REACTIONS (3)
  - Premature baby [Unknown]
  - Low birth weight baby [Unknown]
  - Foetal exposure during pregnancy [Unknown]
